FAERS Safety Report 18105652 (Version 1)
Quarter: 2020Q3

REPORT INFORMATION
  Report Type: Report from Study
  Country: US (occurrence: US)
  Receive Date: 20200803
  Receipt Date: 20200803
  Transmission Date: 20201103
  Serious: Yes (Hospitalization)
  Sender: FDA-Public Use
  Company Number: US-ACTELION-A-NJ2019-192789

PATIENT
  Sex: Female
  Weight: 61.22 kg

DRUGS (5)
  1. ADEMPAS [Suspect]
     Active Substance: RIOCIGUAT
     Indication: PRODUCT USED FOR UNKNOWN INDICATION
     Dosage: UNK
     Route: 065
     Dates: end: 20190820
  2. ADEMPAS [Suspect]
     Active Substance: RIOCIGUAT
     Dosage: 1 MG
     Route: 065
     Dates: start: 20190703
  3. ELIQUIS [Concomitant]
     Active Substance: APIXABAN
  4. OPSUMIT [Suspect]
     Active Substance: MACITENTAN
     Indication: PULMONARY ARTERIAL HYPERTENSION
     Dosage: 10 MG, QD
     Route: 048
  5. DILTIAZEM. [Concomitant]
     Active Substance: DILTIAZEM

REACTIONS (10)
  - Oedema [Unknown]
  - Hospice care [Unknown]
  - Hospitalisation [Unknown]
  - Nephrolithiasis [Unknown]
  - Productive cough [Unknown]
  - Sputum discoloured [Unknown]
  - Oedema peripheral [Recovering/Resolving]
  - Headache [Unknown]
  - Dyspnoea [Unknown]
  - Diarrhoea [Recovered/Resolved]
